FAERS Safety Report 6931393-9 (Version None)
Quarter: 2010Q3

REPORT INFORMATION
  Report Type: 
  Country: None (occurrence: None)
  Receive Date: 20100819
  Receipt Date: 20100811
  Transmission Date: 20110219
  Serious: Yes (Hospitalization, Other)
  Sender: FDA-Public Use
  Company Number: BE-JNJFOC-20100700091

PATIENT
  Age: 47 Year
  Sex: Female

DRUGS (7)
  1. RISPERDAL CONSTA [Suspect]
     Indication: PSYCHOTIC DISORDER
     Route: 030
  2. RISPERDAL CONSTA [Suspect]
     Route: 030
  3. MANIPREX [Concomitant]
     Route: 065
  4. TRIMEPRAZINE TAB [Concomitant]
     Route: 065
  5. VENTOLIN [Concomitant]
     Indication: TOBACCO POISONING
     Route: 065
  6. VENTOLIN [Concomitant]
     Indication: ASTHMA
     Route: 065
  7. CARBAMAZEPINE [Concomitant]
     Indication: MOOD SWINGS
     Route: 065

REACTIONS (7)
  - CONVULSION [None]
  - EPILEPSY [None]
  - INCONTINENCE [None]
  - OVERDOSE [None]
  - RESPIRATORY ARREST [None]
  - URINARY INCONTINENCE [None]
  - VOMITING [None]
